FAERS Safety Report 4332897-8 (Version None)
Quarter: 2004Q1

REPORT INFORMATION
  Report Type: 
  Country: None (occurrence: None)
  Receive Date: 20040330
  Receipt Date: 20040318
  Transmission Date: 20041129
  Serious: Yes (Hospitalization)
  Sender: FDA-Public Use
  Company Number: TEST00204000385

PATIENT
  Age: 81 Year
  Sex: Male

DRUGS (8)
  1. ANDROGEL [Suspect]
     Indication: HYPOGONADISM
     Dosage: 5 G QD TD
     Route: 062
     Dates: start: 20031009
  2. FLORINEF [Suspect]
     Indication: HYPOTENSION
     Dosage: 0.1 MG DAILY PO,
     Route: 048
  3. DILANTIN [Concomitant]
  4. EFFEXOR [Concomitant]
  5. SYNTHROID (VEVOTHYROXINE SODIUM) [Concomitant]
  6. COUMAIN (WARFARIN SODIUM) [Concomitant]
  7. PREDNISOLONE [Concomitant]
  8. BETOPIC (BETAMETHASONE) [Concomitant]

REACTIONS (7)
  - AMNESIA [None]
  - CEREBRAL ISCHAEMIA [None]
  - DIZZINESS [None]
  - HYPERHIDROSIS [None]
  - LOSS OF CONSCIOUSNESS [None]
  - PALLOR [None]
  - SYNCOPE [None]
